FAERS Safety Report 13424816 (Version 2)
Quarter: 2017Q2

REPORT INFORMATION
  Report Type: Spontaneous
  Country: FR (occurrence: FR)
  Receive Date: 20170410
  Receipt Date: 20170524
  Transmission Date: 20170830
  Serious: Yes (Other)
  Sender: FDA-Public Use
  Company Number: FR-TEIKOKU PHARMA USA-TPU2017-00183

PATIENT
  Age: 71 Year
  Sex: Female

DRUGS (4)
  1. DEPAKINE CHRONO [Concomitant]
     Active Substance: VALPROATE SODIUM
  2. LEVOTHYROX [Concomitant]
     Active Substance: LEVOTHYROXINE
  3. EPITOMAX [Concomitant]
     Active Substance: TOPIRAMATE
  4. VERSATIS [Suspect]
     Active Substance: LIDOCAINE
     Indication: PAIN
     Route: 061
     Dates: start: 201612, end: 20170224

REACTIONS (2)
  - Pain [Recovered/Resolved]
  - Sensory loss [Recovered/Resolved]

NARRATIVE: CASE EVENT DATE: 201612
